FAERS Safety Report 6914654-9 (Version None)
Quarter: 2010Q3

REPORT INFORMATION
  Report Type: 
  Country: None (occurrence: None)
  Receive Date: 20100809
  Receipt Date: 20100802
  Transmission Date: 20110219
  Serious: Yes (Death, Hospitalization)
  Sender: FDA-Public Use
  Company Number: SE-MERCK-1008SWE00003

PATIENT
  Age: 71 Year
  Sex: Male

DRUGS (10)
  1. ZOCOR [Suspect]
     Route: 048
     Dates: start: 20100301
  2. NITROFURANTOIN [Suspect]
     Indication: URINARY TRACT INFECTION
     Route: 065
     Dates: start: 20100401
  3. AMLODIPINE BESYLATE [Suspect]
     Route: 048
     Dates: start: 20100318
  4. ENALAPRIL MALEATE [Concomitant]
     Route: 065
  5. FOLIC ACID [Concomitant]
     Route: 065
  6. LEVOTHYROXINE SODIUM [Concomitant]
     Route: 065
  7. CYANOCOBALAMIN [Concomitant]
     Route: 065
  8. FLUTICASONE PROPIONATE [Concomitant]
     Route: 065
  9. CLOPIDOGREL BISULFATE [Concomitant]
     Route: 065
  10. CARBAMAZEPINE [Suspect]
     Route: 048
     Dates: start: 20100301

REACTIONS (1)
  - DRUG RASH WITH EOSINOPHILIA AND SYSTEMIC SYMPTOMS [None]
